FAERS Safety Report 7889324-3 (Version None)
Quarter: 2011Q4

REPORT INFORMATION
  Report Type: 
  Country: None (occurrence: None)
  Receive Date: 20111103
  Receipt Date: 20111024
  Transmission Date: 20120403
  Serious: No
  Sender: FDA-Public Use
  Company Number: US-B.I. PHARMACEUTICALS,INC./RIDGEFIELD-2011-BP-22217BP

PATIENT
  Age: 74 Year
  Sex: Male

DRUGS (12)
  1. PRADAXA [Suspect]
     Indication: ATRIAL FLUTTER
  2. ALLOPURINOL [Concomitant]
     Indication: GOUT
     Dosage: 300 MG
     Route: 048
  3. ASPIRIN [Concomitant]
     Indication: ATRIAL FIBRILLATION
     Dosage: 81 MG
     Route: 048
  4. DOXAZOSIN MESYLATE [Concomitant]
     Indication: BENIGN PROSTATIC HYPERPLASIA
     Dosage: 8 MG
     Route: 048
  5. INDOMETHACIN [Concomitant]
     Indication: ARTHRITIS
     Dosage: 25 MG
     Route: 048
  6. PRADAXA [Suspect]
     Indication: ATRIAL FIBRILLATION
     Dosage: 300 MG
     Route: 048
     Dates: start: 20110501
  7. FOLIC ACID [Concomitant]
     Indication: SUPPLEMENTATION THERAPY
     Dosage: 1 MG
     Route: 048
  8. AMLODIPINE [Concomitant]
     Indication: HYPERTENSION
     Dosage: 5 MG
     Route: 048
  9. ATENOLOL [Concomitant]
     Indication: HYPERTENSION
     Dosage: 100 MG
     Route: 048
  10. LISINOPRIL [Concomitant]
     Indication: HYPERTENSION
     Dosage: 40 MG
     Route: 048
  11. PRAVASTATIN [Concomitant]
     Indication: BLOOD CHOLESTEROL INCREASED
     Dosage: 40 MG
     Route: 048
  12. TRAZODONE HYDROCHLORIDE [Concomitant]
     Indication: DEPRESSION
     Dosage: 50 MG
     Route: 048

REACTIONS (2)
  - LETHARGY [None]
  - INSOMNIA [None]
